FAERS Safety Report 22074160 (Version 1)
Quarter: 2023Q1

REPORT INFORMATION
  Report Type: Spontaneous
  Country: CA (occurrence: CA)
  Receive Date: 20230308
  Receipt Date: 20230308
  Transmission Date: 20230418
  Serious: Yes (Life-Threatening)
  Sender: FDA-Public Use
  Company Number: CA-BAYER-2023A028380

PATIENT
  Sex: Female

DRUGS (1)
  1. ALEVE [Suspect]
     Active Substance: NAPROXEN SODIUM
     Indication: Migraine
     Dosage: 2 DF
     Dates: start: 202303

REACTIONS (2)
  - Drug hypersensitivity [None]
  - Product use in unapproved indication [None]

NARRATIVE: CASE EVENT DATE: 20230301
